FAERS Safety Report 14922637 (Version 1)
Quarter: 2018Q2

REPORT INFORMATION
  Report Type: Spontaneous
  Country: KR (occurrence: KR)
  Receive Date: 20180522
  Receipt Date: 20180522
  Transmission Date: 20180711
  Serious: Yes (Hospitalization, Other)
  Sender: FDA-Public Use
  Company Number: KR-LUPIN PHARMACEUTICALS INC.-2017-04663

PATIENT
  Age: 50 Year
  Sex: Female

DRUGS (10)
  1. AMOXICILLIN. [Suspect]
     Active Substance: AMOXICILLIN
     Indication: TONSILLITIS
     Dosage: UNK
     Route: 065
  2. QUETIAPINE. [Suspect]
     Active Substance: QUETIAPINE
     Dosage: 100 MG, UNK
     Route: 065
  3. SULPIRIDE [Concomitant]
     Active Substance: SULPIRIDE
     Indication: SCHIZOPHRENIA
     Dosage: 600 MG, UNK
     Route: 065
  4. LITHIUM. [Suspect]
     Active Substance: LITHIUM
     Dosage: 900 MG, UNK
     Route: 065
  5. DIVALPROEX [Suspect]
     Active Substance: DIVALPROEX SODIUM
     Indication: SCHIZOPHRENIA
     Dosage: 600 MG, UNK
     Route: 065
  6. OLANZAPINE. [Suspect]
     Active Substance: OLANZAPINE
     Indication: SCHIZOPHRENIA
     Dosage: 10 MG, UNK
  7. QUETIAPINE. [Suspect]
     Active Substance: QUETIAPINE
     Indication: SCHIZOPHRENIA
     Dosage: 600 MG, UNK
     Route: 065
  8. LITHIUM. [Suspect]
     Active Substance: LITHIUM
     Indication: SCHIZOPHRENIA
     Dosage: 1200 MG, UNK
     Route: 065
  9. RISPERIDONE. [Suspect]
     Active Substance: RISPERIDONE
     Indication: SCHIZOPHRENIA
     Dosage: 2 MG, UNK
     Route: 065
  10. QUETIAPINE. [Suspect]
     Active Substance: QUETIAPINE
     Dosage: 200 MG, UNK
     Route: 065

REACTIONS (1)
  - Drug reaction with eosinophilia and systemic symptoms [Recovered/Resolved]
